FAERS Safety Report 7210324-0 (Version None)
Quarter: 2011Q1

REPORT INFORMATION
  Report Type: 
  Country: None (occurrence: None)
  Receive Date: 20110105
  Receipt Date: 20101228
  Transmission Date: 20110831
  Serious: Yes (Hospitalization)
  Sender: FDA-Public Use
  Company Number: FR-PFIZER INC-2010179922

PATIENT
  Age: 36 Year
  Sex: Female

DRUGS (6)
  1. ARAVA [Suspect]
     Dosage: 20 MG, 1X/DAY
     Route: 048
     Dates: end: 20101126
  2. CELEBREX [Concomitant]
     Dosage: 200 MG PER DAY
     Route: 048
     Dates: end: 20101126
  3. KETUM [Concomitant]
     Dosage: UNK
     Route: 048
     Dates: start: 20101101, end: 20101126
  4. SALAZOPYRINE [Suspect]
     Dosage: 1500 MG, 2X/DAY
     Route: 048
     Dates: start: 20100601, end: 20101126
  5. OROCAL VITAMIN D [Concomitant]
     Dosage: 1 DF, 1X/DAY
     Route: 048
     Dates: end: 20101126
  6. EUPANTOL [Concomitant]
     Dosage: 20 MG ONCE
     Route: 048
     Dates: end: 20101126

REACTIONS (1)
  - BONE MARROW FAILURE [None]
